FAERS Safety Report 19381367 (Version 1)
Quarter: 2021Q2

REPORT INFORMATION
  Report Type: Spontaneous
  Country: US (occurrence: US)
  Receive Date: 20210607
  Receipt Date: 20210607
  Transmission Date: 20210717
  Serious: Yes (Hospitalization, Other)
  Sender: FDA-Public Use
  Company Number: US-APOTEX-2021AP013249

PATIENT
  Age: 15 Year
  Sex: Female

DRUGS (5)
  1. MELOXICAM. [Suspect]
     Active Substance: MELOXICAM
     Indication: PRODUCT USED FOR UNKNOWN INDICATION
     Dosage: UNK
     Route: 065
  2. METFORMIN [Suspect]
     Active Substance: METFORMIN HYDROCHLORIDE
     Indication: PRODUCT USED FOR UNKNOWN INDICATION
     Dosage: UNK
     Route: 065
  3. ASPIRIN [ACETYLSALICYLIC ACID] [Suspect]
     Active Substance: ASPIRIN
     Indication: PRODUCT USED FOR UNKNOWN INDICATION
     Dosage: UNK
     Route: 065
  4. AMLODIPINE [Suspect]
     Active Substance: AMLODIPINE BESYLATE
     Indication: PRODUCT USED FOR UNKNOWN INDICATION
     Dosage: UNK
     Route: 065
  5. NAPROXEN. [Suspect]
     Active Substance: NAPROXEN
     Indication: PRODUCT USED FOR UNKNOWN INDICATION
     Dosage: UNK
     Route: 065

REACTIONS (14)
  - Vasodilatation [Recovered/Resolved]
  - Shock [Recovered/Resolved]
  - Drug level above therapeutic [Unknown]
  - Blood creatinine increased [Recovered/Resolved]
  - Hypoglycaemia [Unknown]
  - Hypothermia [Unknown]
  - Lactic acidosis [Unknown]
  - Coma [Unknown]
  - Bradycardia [Unknown]
  - Overdose [Unknown]
  - Epilepsy [Unknown]
  - Haemodynamic instability [Recovered/Resolved]
  - Hypotension [Unknown]
  - International normalised ratio increased [Recovered/Resolved]
